FAERS Safety Report 7859861-6 (Version None)
Quarter: 2011Q4

REPORT INFORMATION
  Report Type: 
  Country: None (occurrence: None)
  Receive Date: 20111026
  Receipt Date: 20111026
  Transmission Date: 20120403
  Serious: Yes (Hospitalization)
  Sender: FDA-Public Use
  Company Number: None

PATIENT
  Sex: Female
  Weight: 64.1 kg

DRUGS (2)
  1. ERLOTINIB HYDROCHLORIDE [Suspect]
     Indication: NON-SMALL CELL LUNG CANCER
     Dosage: 100MG QD, DAYS 2-17/CYCLE PO
     Route: 048
     Dates: start: 20110217, end: 20110929
  2. PEMETREXED [Suspect]
     Indication: NON-SMALL CELL LUNG CANCER
     Dosage: 500MG/M2 Q 3 WEEKS IV
     Route: 042
     Dates: start: 20110217, end: 20110915

REACTIONS (11)
  - TACHYCARDIA [None]
  - HYPOKALAEMIA [None]
  - LUNG ADENOCARCINOMA METASTATIC [None]
  - DECREASED APPETITE [None]
  - HYPOPHAGIA [None]
  - PULMONARY TOXICITY [None]
  - DYSPNOEA EXERTIONAL [None]
  - HYPOTENSION [None]
  - MALIGNANT PLEURAL EFFUSION [None]
  - SEPSIS [None]
  - PNEUMONIA [None]
